FAERS Safety Report 26000134 (Version 1)
Quarter: 2025Q4

REPORT INFORMATION
  Report Type: Spontaneous
  Country: US (occurrence: None)
  Receive Date: 20251104
  Receipt Date: 20251104
  Transmission Date: 20260119
  Serious: Yes (Disabling)
  Sender: FDA-CTU
  Company Number: None

PATIENT
  Age: 69 Year
  Sex: Female
  Weight: 81.19 kg

DRUGS (24)
  1. MOUNJARO [Suspect]
     Active Substance: TIRZEPATIDE
  2. ATORVASTATIN [Concomitant]
     Active Substance: ATORVASTATIN
  3. ALENDRONATE [Concomitant]
     Active Substance: ALENDRONATE SODIUM
  4. BUSPAR [Concomitant]
     Active Substance: BUSPIRONE HYDROCHLORIDE
  5. Famotrigine ER [Concomitant]
  6. LEVOTHYROXINE [Concomitant]
     Active Substance: LEVOTHYROXINE
  7. METOPROLOL SUCCINATE [Concomitant]
     Active Substance: METOPROLOL SUCCINATE
  8. Mychophenolate Mofetil [Concomitant]
  9. Nitrofurantion MCR [Concomitant]
  10. OLANZAPINE [Suspect]
     Active Substance: OLANZAPINE
  11. PRIMIDONE [Concomitant]
     Active Substance: PRIMIDONE
  12. PRIMIDONE [Concomitant]
     Active Substance: PRIMIDONE
  13. PREDNISONE [Concomitant]
     Active Substance: PREDNISONE
  14. TACROLIMUS [Concomitant]
     Active Substance: TACROLIMUS
  15. LANTUS [Concomitant]
     Active Substance: INSULIN GLARGINE
  16. NOVOLOG [Concomitant]
     Active Substance: INSULIN ASPART
  17. VITAMIN D [Concomitant]
     Active Substance: VITAMIN D NOS
  18. CALCIUM [Concomitant]
     Active Substance: CALCIUM
  19. VITAMINS [Concomitant]
     Active Substance: VITAMINS
  20. FISH OIL [Concomitant]
     Active Substance: FISH OIL
  21. ASPIRIN [Concomitant]
     Active Substance: ASPIRIN
  22. B12 [Concomitant]
  23. BIOTIN [Concomitant]
     Active Substance: BIOTIN
  24. IRON [Concomitant]
     Active Substance: IRON

REACTIONS (1)
  - Urinary incontinence [None]

NARRATIVE: CASE EVENT DATE: 20250401
